FAERS Safety Report 24645721 (Version 2)
Quarter: 2025Q4

REPORT INFORMATION
  Report Type: Spontaneous
  Country: US (occurrence: US)
  Receive Date: 20241121
  Receipt Date: 20251121
  Transmission Date: 20260118
  Serious: No
  Sender: ALVOGEN
  Company Number: US-ALVOGEN-2024094890

PATIENT
  Sex: Female

DRUGS (1)
  1. TERIPARATIDE [Suspect]
     Active Substance: TERIPARATIDE
     Indication: Osteoporosis
     Dosage: STRENGTH: 250 MCG/ML?FOR 2 MONTHS;?ONGOING
     Route: 058
     Dates: start: 202403

REACTIONS (10)
  - Fatigue [Unknown]
  - Taste disorder [Unknown]
  - Muscular weakness [Unknown]
  - Abdominal pain upper [Unknown]
  - Arthralgia [Unknown]
  - Asthenia [Unknown]
  - Pain in extremity [Unknown]
  - Back pain [Unknown]
  - Therapy interrupted [Unknown]
  - Insurance issue [Unknown]

NARRATIVE: CASE EVENT DATE: 20240101
